FAERS Safety Report 7931546-7 (Version None)
Quarter: 2011Q4

REPORT INFORMATION
  Report Type: 
  Country: None (occurrence: None)
  Receive Date: 20111121
  Receipt Date: 20111110
  Transmission Date: 20120403
  Serious: Yes (Other)
  Sender: FDA-Public Use
  Company Number: US-BAYER-2011-077171

PATIENT
  Age: 27 Year
  Sex: Female
  Weight: 63.492 kg

DRUGS (1)
  1. YAZ [Suspect]
     Dosage: UNK
     Dates: start: 20090101, end: 20090430

REACTIONS (3)
  - EMOTIONAL DISTRESS [None]
  - INJURY [None]
  - DEEP VEIN THROMBOSIS [None]
